FAERS Safety Report 5626785-4 (Version None)
Quarter: 2008Q1

REPORT INFORMATION
  Report Type: 
  Country: None (occurrence: None)
  Receive Date: 20080212
  Receipt Date: 20080128
  Transmission Date: 20080703
  Serious: Yes (Death)
  Sender: FDA-Public Use
  Company Number: B0506409A

PATIENT
  Age: 18 Year
  Sex: Female

DRUGS (5)
  1. BUPROPION HCL [Suspect]
  2. DIPHENHYDRAMINE (FORMULATION UNKNOWN) (GENERIC) (DIPHENHYDRAMINE) [Suspect]
  3. ALPRAZOLAM [Suspect]
  4. OXCARBAZEPINE [Suspect]
  5. ETHANOL (FORMULATION UNKNOWN) (ALCOHOL) [Suspect]

REACTIONS (3)
  - COMPLETED SUICIDE [None]
  - DRUG INTERACTION [None]
  - DRUG TOXICITY [None]
